FAERS Safety Report 14205404 (Version 1)
Quarter: 2017Q4

REPORT INFORMATION
  Report Type: Spontaneous
  Country: TR (occurrence: TR)
  Receive Date: 20171120
  Receipt Date: 20171120
  Transmission Date: 20180321
  Serious: Yes (Hospitalization)
  Sender: FDA-Public Use
  Company Number: TR-LANNETT COMPANY, INC.-TR-2017LAN001195

PATIENT
  Age: 37 Year
  Sex: Male

DRUGS (9)
  1. DAPTOMYCIN. [Suspect]
     Active Substance: DAPTOMYCIN
     Indication: WOUND INFECTION STAPHYLOCOCCAL
     Dosage: 1.4 MG/KG
     Route: 048
  2. CLINDAMYCIN HYDROCHLORIDE (75MG AND 150MG) [Suspect]
     Active Substance: CLINDAMYCIN HYDROCHLORIDE
     Indication: WOUND INFECTION STAPHYLOCOCCAL
     Dosage: 4X300 MG, FOR 4 WEEKS
     Route: 048
  3. TMP-SMX [Suspect]
     Active Substance: SULFAMETHOXAZOLE\TRIMETHOPRIM
     Indication: WOUND INFECTION STAPHYLOCOCCAL
     Dosage: 2X160/800 MG
     Route: 048
  4. FUSIDIC ACID [Suspect]
     Active Substance: FUSIDIC ACID
     Indication: WOUND INFECTION STAPHYLOCOCCAL
     Dosage: 3X500 MG
     Route: 048
  5. RIFAMPIN. [Suspect]
     Active Substance: RIFAMPIN
     Indication: WOUND INFECTION STAPHYLOCOCCAL
     Dosage: 1X600 MG
     Route: 048
  6. VANCOMYCIN [Suspect]
     Active Substance: VANCOMYCIN
     Indication: WOUND INFECTION
     Dosage: UNK
     Route: 065
  7. LINEZOLID. [Suspect]
     Active Substance: LINEZOLID
     Indication: WOUND INFECTION STAPHYLOCOCCAL
     Dosage: 2X600 MG
     Route: 065
  8. TIGECYCLINE. [Suspect]
     Active Substance: TIGECYCLINE
     Indication: WOUND INFECTION STAPHYLOCOCCAL
     Dosage: 1X100 AND 2X50 MG
     Route: 048
  9. TEICOPLANIN [Suspect]
     Active Substance: TEICOPLANIN
     Indication: WOUND INFECTION
     Dosage: 1X800 MG
     Route: 042

REACTIONS (1)
  - Staphylococcal infection [Recovered/Resolved]
